FAERS Safety Report 15537910 (Version 1)
Quarter: 2018Q4

REPORT INFORMATION
  Report Type: Spontaneous
  Country: US (occurrence: US)
  Receive Date: 20181022
  Receipt Date: 20181022
  Transmission Date: 20190205
  Serious: No
  Sender: FDA-Public Use
  Company Number: US-SA-2018SA080912

PATIENT
  Age: 82 Year
  Sex: Female
  Weight: 89.8 kg

DRUGS (4)
  1. WELCHOL [Suspect]
     Active Substance: COLESEVELAM HYDROCHLORIDE
     Indication: DIARRHOEA
     Dosage: 3.75 G (1 PACKET),QD
     Route: 048
     Dates: start: 201802, end: 201802
  2. WELCHOL [Suspect]
     Active Substance: COLESEVELAM HYDROCHLORIDE
     Dosage: 3.75 G (1 PACKET),QD
     Route: 048
     Dates: start: 201802
  3. LOPERAMIDE HYDROCHLORIDE. [Suspect]
     Active Substance: LOPERAMIDE HYDROCHLORIDE
     Indication: DIARRHOEA
     Dosage: UNK UNK, UNK
     Route: 065
     Dates: start: 201802, end: 201802
  4. WELCHOL [Suspect]
     Active Substance: COLESEVELAM HYDROCHLORIDE
     Indication: DIARRHOEA
     Dosage: 2500 MG, QD
     Route: 048
     Dates: start: 201802, end: 201802

REACTIONS (4)
  - Diarrhoea [Recovered/Resolved]
  - Pain [Unknown]
  - Off label use [Not Recovered/Not Resolved]
  - Product dose omission [Unknown]

NARRATIVE: CASE EVENT DATE: 201802
